FAERS Safety Report 8441851-6 (Version None)
Quarter: 2012Q2

REPORT INFORMATION
  Report Type: 
  Country: None (occurrence: None)
  Receive Date: 20120615
  Receipt Date: 20110909
  Transmission Date: 20120825
  Serious: No
  Sender: FDA-Public Use
  Company Number: US-NOVEN-11US003176

PATIENT
  Sex: Male

DRUGS (4)
  1. ALBUTEROL [Concomitant]
     Indication: HYPERSENSITIVITY
     Dosage: UNK
  2. ZYRTEC [Concomitant]
     Indication: HYPERSENSITIVITY
     Dosage: UNK
     Route: 048
  3. DAYTRANA [Suspect]
     Indication: ATTENTION DEFICIT/HYPERACTIVITY DISORDER
     Dosage: 15 MG, QD
     Route: 062
     Dates: start: 20110901
  4. SINGULAIR [Concomitant]
     Indication: HYPERSENSITIVITY
     Dosage: 4 MG, UNK
     Route: 048

REACTIONS (4)
  - PRODUCT QUALITY ISSUE [None]
  - APPLICATION SITE ERYTHEMA [None]
  - APPLICATION SITE PRURITUS [None]
  - DRUG ADMINISTRATION ERROR [None]
